FAERS Safety Report 12094445 (Version 2)
Quarter: 2016Q2

REPORT INFORMATION
  Report Type: Spontaneous
  Country: US (occurrence: US)
  Receive Date: 20160219
  Receipt Date: 20160425
  Transmission Date: 20160815
  Serious: No
  Sender: FDA-Public Use
  Company Number: US-TAKEDA-2016TUS002368

PATIENT
  Age: 67 Year
  Sex: Female
  Weight: 99.77 kg

DRUGS (2)
  1. PREVACID [Suspect]
     Active Substance: LANSOPRAZOLE
     Indication: GASTROOESOPHAGEAL REFLUX DISEASE
     Dosage: UNK, QD
     Route: 048
     Dates: start: 201512, end: 20160204
  2. PROPANOLOL                         /00030001/ [Concomitant]
     Active Substance: PROPRANOLOL HYDROCHLORIDE
     Indication: ATRIAL FIBRILLATION
     Dosage: 10 MG, UNK
     Route: 048

REACTIONS (4)
  - Oral discomfort [Recovering/Resolving]
  - Dysgeusia [Recovering/Resolving]
  - Throat irritation [Recovering/Resolving]
  - Glossodynia [Recovering/Resolving]
